FAERS Safety Report 15353298 (Version 1)
Quarter: 2018Q3

REPORT INFORMATION
  Report Type: Spontaneous
  Country: US (occurrence: US)
  Receive Date: 20180830
  Receipt Date: 20180830
  Transmission Date: 20181010
  Serious: Yes (Hospitalization)
  Sender: FDA-Public Use
  Company Number: None

PATIENT
  Age: 58 Year
  Sex: Male

DRUGS (7)
  1. TAMSULOSIN [Concomitant]
     Active Substance: TAMSULOSIN
  2. VITAMIN D [Concomitant]
     Active Substance: CHOLECALCIFEROL
  3. CELECOXIB. [Concomitant]
     Active Substance: CELECOXIB
  4. LISINOPRIL. [Concomitant]
     Active Substance: LISINOPRIL
  5. LUPRON DEPOT [Suspect]
     Active Substance: LEUPROLIDE ACETATE
     Indication: PROSTATE CANCER
     Dosage: ?          OTHER FREQUENCY:Q 6 MONTHS;?
     Route: 030
     Dates: start: 20180328
  6. OXYCODONE [Concomitant]
     Active Substance: OXYCODONE
  7. FINASTERIDE. [Concomitant]
     Active Substance: FINASTERIDE

REACTIONS (4)
  - Bone cancer [None]
  - Pneumonia [None]
  - Pain [None]
  - Fatigue [None]

NARRATIVE: CASE EVENT DATE: 20180829
